FAERS Safety Report 7674800-9 (Version None)
Quarter: 2011Q3

REPORT INFORMATION
  Report Type: 
  Country: None (occurrence: None)
  Receive Date: 20110810
  Receipt Date: 20110802
  Transmission Date: 20111222
  Serious: Yes (Other)
  Sender: FDA-Public Use
  Company Number: IN-VIIV HEALTHCARE LIMITED-B0738359A

PATIENT
  Age: 38 Year
  Sex: Male

DRUGS (4)
  1. LAMIVUDINE [Suspect]
     Indication: HIV INFECTION
     Route: 065
  2. NEVIRAPINE [Suspect]
     Indication: HIV INFECTION
  3. COTRIM [Concomitant]
     Indication: PROPHYLAXIS
  4. ZIDOVUDINE [Suspect]
     Indication: HIV INFECTION
     Route: 065

REACTIONS (6)
  - PYREXIA [None]
  - LYMPH NODE PALPABLE [None]
  - CRYPTOCOCCOSIS [None]
  - COUGH [None]
  - IMMUNE RECONSTITUTION SYNDROME [None]
  - DYSPNOEA [None]
